FAERS Safety Report 9586310 (Version 1)
Quarter: 2013Q4

REPORT INFORMATION
  Report Type: Report from Study
  Country: US (occurrence: US)
  Receive Date: 20131003
  Receipt Date: 20131003
  Transmission Date: 20140711
  Serious: Yes (Death)
  Sender: FDA-Public Use
  Company Number: PHEH2013US020594

PATIENT
  Sex: Male

DRUGS (3)
  1. AFINITOR [Suspect]
     Dosage: 10 MG, DAILY
     Route: 048
     Dates: start: 20110804
  2. LISINOPRIL [Concomitant]
  3. SIMVASTATIN [Concomitant]

REACTIONS (1)
  - Death [Fatal]
